FAERS Safety Report 14375731 (Version 1)
Quarter: 2018Q1

REPORT INFORMATION
  Report Type: Report from Study
  Country: US (occurrence: US)
  Receive Date: 20180111
  Receipt Date: 20180111
  Transmission Date: 20180509
  Serious: Yes (Death, Other)
  Sender: FDA-Public Use
  Company Number: US-BAYER-2017-239473

PATIENT
  Age: 78 Year
  Sex: Female
  Weight: 77.1 kg

DRUGS (3)
  1. APIXABAN [Concomitant]
     Active Substance: APIXABAN
  2. ADEMPAS [Suspect]
     Active Substance: RIOCIGUAT
     Indication: PULMONARY ARTERIAL HYPERTENSION
     Dosage: UNK
     Dates: start: 20170425
  3. ADEMPAS [Suspect]
     Active Substance: RIOCIGUAT
     Indication: PULMONARY ARTERIAL HYPERTENSION
     Dosage: 2.5 MG, TID
     Route: 048

REACTIONS (7)
  - Oral mucosal blistering [Unknown]
  - Balance disorder [Unknown]
  - Death [Fatal]
  - Constipation [Unknown]
  - Oedema [Unknown]
  - Dyspnoea [None]
  - Dyspnoea [Unknown]

NARRATIVE: CASE EVENT DATE: 2017
